FAERS Safety Report 13637204 (Version 1)
Quarter: 2017Q2

REPORT INFORMATION
  Report Type: Spontaneous
  Country: DE (occurrence: DE)
  Receive Date: 20170609
  Receipt Date: 20170609
  Transmission Date: 20170830
  Serious: Yes (Other)
  Sender: FDA-Public Use
  Company Number: ALCN2017DE003798

PATIENT
  Sex: Male

DRUGS (1)
  1. VITALUX PLUS [Suspect]
     Active Substance: VITAMINS
     Indication: AGE-RELATED MACULAR DEGENERATION
     Route: 065

REACTIONS (2)
  - Age-related macular degeneration [Recovering/Resolving]
  - Visual impairment [Unknown]
